FAERS Safety Report 17516263 (Version 1)
Quarter: 2020Q1

REPORT INFORMATION
  Report Type: Spontaneous
  Country: US (occurrence: US)
  Receive Date: 20200306
  Receipt Date: 20200306
  Transmission Date: 20200409
  Serious: Yes (Disabling, Other)
  Sender: FDA-Public Use
  Company Number: None

PATIENT
  Age: 41 Year
  Sex: Female
  Weight: 67.5 kg

DRUGS (6)
  1. IBUPROFEN. [Concomitant]
     Active Substance: IBUPROFEN
  2. ARMODAFINIL. [Suspect]
     Active Substance: ARMODAFINIL
  3. COLLAGEN [Concomitant]
     Active Substance: COLLAGEN
  4. MODAFINIL. [Suspect]
     Active Substance: MODAFINIL
     Indication: SLEEP DISORDER
     Dosage: ?          QUANTITY:30 TABLET(S);?
     Route: 048
     Dates: start: 20180730, end: 20200120
  5. ZOLOFT [Concomitant]
     Active Substance: SERTRALINE HYDROCHLORIDE
  6. MORPHINE [Concomitant]
     Active Substance: MORPHINE

REACTIONS (9)
  - Panic reaction [None]
  - Mood swings [None]
  - Obsessive-compulsive disorder [None]
  - Memory impairment [None]
  - Irritability [None]
  - Paranoia [None]
  - Mydriasis [None]
  - Speech disorder [None]
  - Insomnia [None]

NARRATIVE: CASE EVENT DATE: 20180801
